FAERS Safety Report 25982165 (Version 1)
Quarter: 2025Q4

REPORT INFORMATION
  Report Type: Report from Study
  Country: BR (occurrence: BR)
  Receive Date: 20251031
  Receipt Date: 20251031
  Transmission Date: 20260118
  Serious: Yes (Other)
  Sender: JOHNSON AND JOHNSON
  Company Number: BR-JNJFOC-20250732084

PATIENT
  Age: 42 Year
  Sex: Female
  Weight: 90 kg

DRUGS (5)
  1. SPRAVATO [Suspect]
     Active Substance: ESKETAMINE
     Indication: Major depression
     Dosage: 3 DEVICES, PER SESSION
     Route: 045
     Dates: start: 202503
  2. SPRAVATO [Suspect]
     Active Substance: ESKETAMINE
     Dosage: 3 DEVICES, PER SESSION
     Route: 045
     Dates: end: 202502
  3. SPRAVATO [Suspect]
     Active Substance: ESKETAMINE
     Dosage: 3 DEVICES, PER SESSION
     Route: 045
  4. SPRAVATO [Suspect]
     Active Substance: ESKETAMINE
     Dosage: 3 DEVICES, PER SESSION
     Route: 045
  5. SPRAVATO [Suspect]
     Active Substance: ESKETAMINE
     Dosage: 3 DEVICES
     Route: 045
     Dates: start: 202510

REACTIONS (5)
  - Obesity [Unknown]
  - Off label use [Unknown]
  - Off label use [Unknown]
  - Depression [Unknown]
  - Inappropriate schedule of product administration [Unknown]
